FAERS Safety Report 12990555 (Version 5)
Quarter: 2017Q1

REPORT INFORMATION
  Report Type: Spontaneous
  Country: AR (occurrence: AR)
  Receive Date: 20161201
  Receipt Date: 20170317
  Transmission Date: 20170428
  Serious: Yes (Other)
  Sender: FDA-Public Use
  Company Number: AR-PFIZER INC-2016549145

PATIENT
  Age: 62 Year
  Sex: Male
  Weight: 100 kg

DRUGS (8)
  1. AMIODARONE HCL [Suspect]
     Active Substance: AMIODARONE HYDROCHLORIDE
     Dosage: UNK
     Route: 065
  2. CLOPIDOGREL [Concomitant]
     Active Substance: CLOPIDOGREL BISULFATE
     Dosage: UKN
  3. AMIODARONA [Concomitant]
     Active Substance: AMIODARONE
     Dosage: UNK
  4. CORBIS [Concomitant]
     Dosage: UNK
  5. PAXON [Concomitant]
     Dosage: UNK
  6. METHOTREXATE SODIUM. [Suspect]
     Active Substance: METHOTREXATE SODIUM
     Dosage: UNK
  7. ENBREL [Suspect]
     Active Substance: ETANERCEPT
     Indication: PSORIATIC ARTHROPATHY
     Dosage: UNK
     Route: 065
  8. MINUSLIP [Concomitant]
     Dosage: UNK

REACTIONS (7)
  - Pain [Unknown]
  - Bronchiectasis [Unknown]
  - Cough [Unknown]
  - Fatigue [Unknown]
  - Pulmonary fibrosis [Unknown]
  - Dyspnoea [Recovering/Resolving]
  - Hiatus hernia [Unknown]

NARRATIVE: CASE EVENT DATE: 201603
